FAERS Safety Report 7280901-X (Version None)
Quarter: 2011Q1

REPORT INFORMATION
  Report Type: 
  Country: None (occurrence: None)
  Receive Date: 20110207
  Receipt Date: 20110207
  Transmission Date: 20110831
  Serious: Yes (Hospitalization, Other)
  Sender: FDA-Public Use
  Company Number: None

PATIENT
  Age: 52 Year
  Sex: Male
  Weight: 118.8424 kg

DRUGS (2)
  1. KROGER ALCOHOL PADS (TRIAD GROUP) [Suspect]
     Indication: BLOOD TEST
     Dosage: 4 TO 5 PADS DAILY ALL THE TIME
     Dates: start: 20101201, end: 20110101
  2. KROGER ALCOHOL PADS (TRIAD GROUP) [Suspect]
     Indication: INJECTION
     Dosage: 4 TO 5 PADS DAILY ALL THE TIME
     Dates: start: 20101201, end: 20110101

REACTIONS (3)
  - CELLULITIS [None]
  - PRODUCT QUALITY ISSUE [None]
  - BACILLUS INFECTION [None]
